FAERS Safety Report 9257521 (Version 2)
Quarter: 2014Q1

REPORT INFORMATION
  Report Type: Spontaneous
  Country: US (occurrence: None)
  Receive Date: 20121212
  Receipt Date: 20130314
  Transmission Date: 20141002
  Serious: No
  Sender: FDA-Public Use
  Company Number: 1208USA004841

PATIENT
  Age: 47 Year
  Sex: Female

DRUGS (3)
  1. PEG-INTRON [Suspect]
     Indication: HEPATITIS C
     Dosage: REDIPEN, SUBCUTANEOUS
     Route: 058
     Dates: start: 20120607
  2. RIBAVIRIN (RIBAVIRIN) CAPSULE [Suspect]
     Indication: HEPATITIS C
     Route: 048
     Dates: start: 20120607
  3. VICTRELIS [Suspect]
     Indication: HEPATITIS C
     Route: 048
     Dates: start: 20120629

REACTIONS (11)
  - White blood cell count decreased [None]
  - Weight decreased [None]
  - Alopecia [None]
  - Inappropriate schedule of drug administration [None]
  - Hypokalaemia [None]
  - Blood magnesium decreased [None]
  - Intervertebral disc protrusion [None]
  - Blood potassium decreased [None]
  - Dysphagia [None]
  - Vomiting [None]
  - Decreased appetite [None]
